FAERS Safety Report 15127716 (Version 1)
Quarter: 2018Q3

REPORT INFORMATION
  Report Type: Spontaneous
  Country: JP (occurrence: JP)
  Receive Date: 20180710
  Receipt Date: 20180710
  Transmission Date: 20181010
  Serious: Yes (Other)
  Sender: FDA-Public Use
  Company Number: JP-BAYER-2018-125285

PATIENT
  Age: 65 Year
  Sex: Male
  Weight: 62.3 kg

DRUGS (3)
  1. ESTRAMUSTINE PHOSPHATE [Concomitant]
     Active Substance: ESTRAMUSTINE PHOSPHATE
     Indication: PROSTATE CANCER
     Dosage: UNK
     Dates: start: 201804
  2. XOFIGO [Suspect]
     Active Substance: RADIUM RA-223 DICHLORIDE
     Indication: HORMONE-REFRACTORY PROSTATE CANCER
     Dosage: 55KBQ/KG, TOTAL 6 TIMES
     Route: 042
     Dates: start: 20171030, end: 201804
  3. XOFIGO [Suspect]
     Active Substance: RADIUM RA-223 DICHLORIDE
     Indication: METASTASES TO BONE

REACTIONS (2)
  - Metastases to bone [None]
  - Prostatic specific antigen increased [None]

NARRATIVE: CASE EVENT DATE: 20180413
